FAERS Safety Report 7102057-6 (Version None)
Quarter: 2010Q4

REPORT INFORMATION
  Report Type: 
  Country: None (occurrence: None)
  Receive Date: 20101115
  Receipt Date: 20101105
  Transmission Date: 20110411
  Serious: Yes (Hospitalization)
  Sender: FDA-Public Use
  Company Number: GB-ASTRAZENECA-2010SE48484

PATIENT
  Age: 29849 Day
  Sex: Female

DRUGS (7)
  1. FASLODEX [Suspect]
     Indication: BREAST CANCER METASTATIC
     Route: 030
     Dates: start: 20100617, end: 20101010
  2. ARIMIDEX [Suspect]
     Indication: BREAST CANCER METASTATIC
     Dosage: DAILY
     Route: 048
     Dates: start: 20100618, end: 20101010
  3. RAMIPRIL [Concomitant]
     Indication: HYPERTENSION
     Route: 048
     Dates: start: 20071204, end: 20101010
  4. BENDROFLUMETHIAZIDE [Concomitant]
     Indication: HYPERTENSION
     Route: 048
     Dates: start: 20071221, end: 20101010
  5. COLECALCIFEROL [Concomitant]
     Indication: METASTASES TO BONE
     Dosage: CALCIUM 500MG/CA 2+ 12.5 ONE TABLET TWO TIMES A DAY
     Route: 048
     Dates: start: 20080103
  6. LETROZOLE [Concomitant]
     Indication: BREAST CANCER METASTATIC
  7. ZOLEDRONIC ACID [Concomitant]
     Indication: BREAST CANCER METASTATIC

REACTIONS (1)
  - RENAL FAILURE ACUTE [None]
